FAERS Safety Report 5269427-2 (Version None)
Quarter: 2007Q1

REPORT INFORMATION
  Report Type: 
  Country: None (occurrence: None)
  Receive Date: 20070320
  Receipt Date: 20070314
  Transmission Date: 20070707
  Serious: Yes (Life-Threatening, Hospitalization, Disabling)
  Sender: FDA-Public Use
  Company Number: US-JNJFOC-20061102439

PATIENT
  Sex: Female
  Weight: 131.54 kg

DRUGS (6)
  1. REMICADE [Suspect]
     Dosage: DOSE=3VIALS
     Route: 042
  2. REMICADE [Suspect]
     Dosage: DOSE=3VIALS
     Route: 042
  3. REMICADE [Suspect]
     Dosage: DOSE=3VIALS
     Route: 042
  4. REMICADE [Suspect]
     Indication: RHEUMATOID ARTHRITIS
     Dosage: DOSE=3VIALS
     Route: 042
  5. METHOTREXATE [Concomitant]
     Indication: RHEUMATOID ARTHRITIS
  6. ETANERCEPT [Concomitant]
     Indication: RHEUMATOID ARTHRITIS

REACTIONS (4)
  - DISSEMINATED INTRAVASCULAR COAGULATION [None]
  - HISTOPLASMOSIS DISSEMINATED [None]
  - ORGAN FAILURE [None]
  - SEPSIS [None]
